FAERS Safety Report 13736889 (Version 1)
Quarter: 2017Q3

REPORT INFORMATION
  Report Type: Spontaneous
  Country: US (occurrence: US)
  Receive Date: 20170710
  Receipt Date: 20170710
  Transmission Date: 20171127
  Serious: Yes (Life-Threatening, Hospitalization)
  Sender: FDA-Public Use
  Company Number: None

PATIENT
  Age: 46 Year
  Sex: Female
  Weight: 60.75 kg

DRUGS (4)
  1. ARIMIDEX [Concomitant]
     Active Substance: ANASTROZOLE
  2. XANAX [Suspect]
     Active Substance: ALPRAZOLAM
     Indication: ANXIETY
     Dosage: ?          OTHER STRENGTH:MG;?
     Route: 048
  3. PROZAC [Concomitant]
     Active Substance: FLUOXETINE HYDROCHLORIDE
  4. KLONOPIN [Suspect]
     Active Substance: CLONAZEPAM
     Indication: ANXIETY
     Dosage: ?          OTHER STRENGTH:MG;?
     Route: 048

REACTIONS (24)
  - Drug tolerance [None]
  - Weight decreased [None]
  - Restless legs syndrome [None]
  - Dry skin [None]
  - Anxiety [None]
  - Intestinal obstruction [None]
  - Suicidal ideation [None]
  - Loss of personal independence in daily activities [None]
  - Impaired work ability [None]
  - Nausea [None]
  - Vision blurred [None]
  - Arthralgia [None]
  - Depression [None]
  - Abnormal behaviour [None]
  - Dry mouth [None]
  - Urinary tract disorder [None]
  - Alcohol use [None]
  - Breast cancer stage II [None]
  - Headache [None]
  - Cognitive disorder [None]
  - Drug withdrawal syndrome [None]
  - Pain [None]
  - Tic [None]
  - Insomnia [None]
